FAERS Safety Report 8123424-8 (Version None)
Quarter: 2012Q1

REPORT INFORMATION
  Report Type: 
  Country: None (occurrence: None)
  Receive Date: 20120208
  Receipt Date: 20120203
  Transmission Date: 20120608
  Serious: Yes (Other)
  Sender: FDA-Public Use
  Company Number: JP-PFIZER INC-2012014839

PATIENT
  Age: 5 Year
  Sex: Female

DRUGS (2)
  1. EPINASTINE HYDROCHLORIDE [Concomitant]
     Route: 048
  2. ATARAX [Suspect]
     Indication: URTICARIA
     Dosage: 0.8 G DAILY
     Route: 048
     Dates: start: 20110822

REACTIONS (1)
  - GROWTH RETARDATION [None]
